FAERS Safety Report 15892408 (Version 1)
Quarter: 2019Q1

REPORT INFORMATION
  Report Type: Report from Study
  Country: US (occurrence: US)
  Receive Date: 20190130
  Receipt Date: 20190130
  Transmission Date: 20190417
  Serious: No
  Sender: FDA-Public Use
  Company Number: US-EXELIXIS-CABO-18014954

PATIENT
  Sex: Female

DRUGS (1)
  1. CABOMETYX [Suspect]
     Active Substance: CABOZANTINIB S-MALATE
     Indication: RENAL CANCER
     Dosage: 60 MG, QD (PM W/O FOOD)
     Dates: start: 20180628

REACTIONS (8)
  - Paraesthesia [Recovering/Resolving]
  - Back pain [Recovering/Resolving]
  - Nasal dryness [Recovered/Resolved]
  - Swelling face [Not Recovered/Not Resolved]
  - Epistaxis [Recovered/Resolved]
  - Blood pressure fluctuation [Unknown]
  - Nausea [Unknown]
  - Vomiting [Unknown]
